FAERS Safety Report 7633201-X (Version None)
Quarter: 2011Q3

REPORT INFORMATION
  Report Type: 
  Country: None (occurrence: None)
  Receive Date: 20110725
  Receipt Date: 20110722
  Transmission Date: 20111222
  Serious: Yes (Life-Threatening)
  Sender: FDA-Public Use
  Company Number: US-PFIZER INC-2011163553

PATIENT
  Age: 62 Year
  Sex: Male
  Weight: 110 kg

DRUGS (1)
  1. RELISTOR [Suspect]
     Indication: CONSTIPATION
     Dosage: 12 MG, 0.6 ML PER VIAL, EVERY 2DAYS
     Route: 030
     Dates: start: 20091120, end: 20101210

REACTIONS (6)
  - CHEST PAIN [None]
  - HYPERHIDROSIS [None]
  - NAUSEA [None]
  - FEELING ABNORMAL [None]
  - HEART RATE INCREASED [None]
  - HEADACHE [None]
